FAERS Safety Report 24722162 (Version 1)
Quarter: 2024Q4

REPORT INFORMATION
  Report Type: Spontaneous
  Country: US (occurrence: None)
  Receive Date: 20241210
  Receipt Date: 20241210
  Transmission Date: 20250114
  Serious: Yes (Death)
  Sender: Public
  Company Number: None

PATIENT
  Age: 75 Year
  Sex: Male

DRUGS (3)
  1. BARICITINIB [Suspect]
     Active Substance: BARICITINIB
     Indication: COVID-19
     Dosage: 1.00 UNK  -  UNKNOWN  AM ORAL?
     Route: 048
     Dates: start: 20211202, end: 20211210
  2. REMDESIVIR [Suspect]
     Active Substance: REMDESIVIR
  3. DEXAMETHASONE [Suspect]
     Active Substance: DEXAMETHASONE

REACTIONS (3)
  - Infection [None]
  - COVID-19 [None]
  - Disease progression [None]

NARRATIVE: CASE EVENT DATE: 20211214
